FAERS Safety Report 24210878 (Version 3)
Quarter: 2025Q2

REPORT INFORMATION
  Report Type: Report from Study
  Country: US (occurrence: US)
  Receive Date: 20240814
  Receipt Date: 20250426
  Transmission Date: 20250717
  Serious: Yes (Other)
  Sender: ABBVIE
  Company Number: US-ABBVIE-5878584

PATIENT
  Age: 72 Year
  Sex: Male
  Weight: 108 kg

DRUGS (12)
  1. SKYRIZI [Suspect]
     Active Substance: RISANKIZUMAB-RZAA
     Indication: Psoriasis
     Dosage: DOSE FORM- SOLUTION FOR INJECTION IN PRE-FILLED PEN
     Route: 058
     Dates: start: 202301, end: 202301
  2. SKYRIZI [Suspect]
     Active Substance: RISANKIZUMAB-RZAA
     Route: 058
     Dates: start: 202302
  3. SYNVISC-ONE [Suspect]
     Active Substance: HYLAN G-F 20
     Indication: Product used for unknown indication
     Route: 058
  4. LOSARTAN [Concomitant]
     Active Substance: LOSARTAN
     Indication: Hypertension
  5. ATORVASTATIN [Concomitant]
     Active Substance: ATORVASTATIN
     Indication: Blood cholesterol abnormal
  6. AMLODIPINE [Concomitant]
     Active Substance: AMLODIPINE BESYLATE
     Indication: Hypertension
  7. FLONASE [Concomitant]
     Active Substance: FLUTICASONE PROPIONATE
     Indication: Asthma
  8. CETIRIZINE [Concomitant]
     Active Substance: CETIRIZINE HYDROCHLORIDE
     Indication: Product used for unknown indication
  9. RYBELSUS [Concomitant]
     Active Substance: SEMAGLUTIDE
     Indication: Weight
  10. HYDROCHLOROTHIAZIDE [Concomitant]
     Active Substance: HYDROCHLOROTHIAZIDE
     Indication: Hypertension
  11. ASPIRIN [Concomitant]
     Active Substance: ASPIRIN
     Indication: Product used for unknown indication
  12. JULUCA [Concomitant]
     Active Substance: DOLUTEGRAVIR SODIUM\RILPIVIRINE HYDROCHLORIDE
     Indication: HIV infection

REACTIONS (10)
  - Blindness [Not Recovered/Not Resolved]
  - Glaucoma [Unknown]
  - Emphysema [Not Recovered/Not Resolved]
  - Dyspnoea [Not Recovered/Not Resolved]
  - Groin pain [Not Recovered/Not Resolved]
  - Injection site papule [Recovered/Resolved]
  - Nasopharyngitis [Recovering/Resolving]
  - Gait disturbance [Unknown]
  - Osteoarthritis [Not Recovered/Not Resolved]
  - Pain [Unknown]

NARRATIVE: CASE EVENT DATE: 20230101
